FAERS Safety Report 7052816-3 (Version None)
Quarter: 2010Q4

REPORT INFORMATION
  Report Type: 
  Country: None (occurrence: None)
  Receive Date: 20101012
  Receipt Date: 20101008
  Transmission Date: 20110411
  Serious: Yes (Death)
  Sender: FDA-Public Use
  Company Number: 2010SP053508

PATIENT

DRUGS (2)
  1. PEG-INTRON [Suspect]
     Indication: HEPATITIS C
     Dosage: SC
     Route: 058
  2. INTRON A [Suspect]
     Indication: HEPATITIS C
     Dosage: IM
     Route: 030

REACTIONS (1)
  - LIVER TRANSPLANT REJECTION [None]
